FAERS Safety Report 6236702-4 (Version None)
Quarter: 2009Q2

REPORT INFORMATION
  Report Type: 
  Country: None (occurrence: None)
  Receive Date: 20090619
  Receipt Date: 20090326
  Transmission Date: 20091009
  Serious: No
  Sender: FDA-Public Use
  Company Number: US-ASTRAZENECA-2009UW07745

PATIENT
  Age: 75 Year
  Sex: Female
  Weight: 79.4 kg

DRUGS (6)
  1. ATACAND HCT [Suspect]
     Dosage: 16 + 12.5 MG DAILY
     Route: 048
  2. CARDIZEM [Concomitant]
  3. ASPIRIN [Concomitant]
  4. VITAMINS [Concomitant]
  5. FISH OIL [Concomitant]
  6. FOLIC ACID [Concomitant]

REACTIONS (9)
  - ARTHRALGIA [None]
  - ARTHRITIS [None]
  - BACK PAIN [None]
  - BLADDER DISORDER [None]
  - BONE PAIN [None]
  - CHILLS [None]
  - MUSCULOSKELETAL STIFFNESS [None]
  - MYALGIA [None]
  - POLLAKIURIA [None]
